FAERS Safety Report 8187365-2 (Version None)
Quarter: 2012Q1

REPORT INFORMATION
  Report Type: 
  Country: None (occurrence: None)
  Receive Date: 20120216
  Receipt Date: 20111011
  Transmission Date: 20120608
  Serious: Yes (Hospitalization)
  Sender: FDA-Public Use
  Company Number: 20110926CINRY2310

PATIENT
  Age: 54 Year
  Sex: Female

DRUGS (19)
  1. EPIPEN [Concomitant]
  2. OXYGEN (OXYGEN) [Concomitant]
  3. DILTIAZEM [Concomitant]
  4. MELATONIN (MELATONIN) [Concomitant]
  5. NASAL SPRAY [Concomitant]
  6. XOPENEX [Concomitant]
  7. CINRYZE [Suspect]
     Indication: HEREDITARY ANGIOEDEMA
     Dosage: INTRAVENOUS (1000 IU, 1 IN 3 D), INTRAVENOUS (1500 IU, 2 IN 1 WK), INTRAVENOUS
     Route: 042
     Dates: start: 20101101, end: 20101201
  8. CINRYZE [Suspect]
     Indication: PROPHYLAXIS
     Dosage: INTRAVENOUS (1000 IU, 1 IN 3 D), INTRAVENOUS (1500 IU, 2 IN 1 WK), INTRAVENOUS
     Route: 042
     Dates: start: 20101101, end: 20101201
  9. CINRYZE [Suspect]
     Indication: HEREDITARY ANGIOEDEMA
     Dosage: INTRAVENOUS (1000 IU, 1 IN 3 D), INTRAVENOUS (1500 IU, 2 IN 1 WK), INTRAVENOUS
     Route: 042
     Dates: start: 20110101, end: 20110101
  10. CINRYZE [Suspect]
     Indication: PROPHYLAXIS
     Dosage: INTRAVENOUS (1000 IU, 1 IN 3 D), INTRAVENOUS (1500 IU, 2 IN 1 WK), INTRAVENOUS
     Route: 042
     Dates: start: 20110101, end: 20110101
  11. CINRYZE [Suspect]
     Indication: HEREDITARY ANGIOEDEMA
     Dosage: INTRAVENOUS (1000 IU, 1 IN 3 D), INTRAVENOUS (1500 IU, 2 IN 1 WK), INTRAVENOUS
     Route: 042
     Dates: start: 20110301, end: 20110101
  12. CINRYZE [Suspect]
     Indication: PROPHYLAXIS
     Dosage: INTRAVENOUS (1000 IU, 1 IN 3 D), INTRAVENOUS (1500 IU, 2 IN 1 WK), INTRAVENOUS
     Route: 042
     Dates: start: 20110301, end: 20110101
  13. BENADRYL [Concomitant]
  14. ADVAIR DISKUS 100/50 [Concomitant]
  15. DIAZEPAM [Concomitant]
  16. HYDROCODONE BITARTRATE [Concomitant]
  17. PLAVIX [Concomitant]
  18. DANAZOL [Concomitant]
  19. METOPROLOL TARTRATE [Concomitant]

REACTIONS (3)
  - HERNIA [None]
  - HEREDITARY ANGIOEDEMA [None]
  - THERAPY REGIMEN CHANGED [None]
